FAERS Safety Report 13130470 (Version 1)
Quarter: 2017Q1

REPORT INFORMATION
  Report Type: Report from Study
  Country: BR (occurrence: BR)
  Receive Date: 20170119
  Receipt Date: 20170119
  Transmission Date: 20170428
  Serious: Yes (Other)
  Sender: FDA-Public Use
  Company Number: BR-JNJFOC-20170114968

PATIENT
  Age: 66 Year
  Sex: Female
  Weight: 60 kg

DRUGS (1)
  1. SIMPONI [Suspect]
     Active Substance: GOLIMUMAB
     Indication: RHEUMATOID ARTHRITIS
     Route: 058
     Dates: start: 20160212

REACTIONS (6)
  - Urinary tract infection [Not Recovered/Not Resolved]
  - Gastric disorder [Unknown]
  - Hypophagia [Unknown]
  - Osteomyelitis [Recovered/Resolved]
  - Insomnia [Unknown]
  - Calculus bladder [Unknown]

NARRATIVE: CASE EVENT DATE: 201611
